FAERS Safety Report 7161692-X (Version None)
Quarter: 2010Q4

REPORT INFORMATION
  Report Type: 
  Country: None (occurrence: None)
  Receive Date: 20101215
  Receipt Date: 20101208
  Transmission Date: 20110411
  Serious: Yes (Other)
  Sender: FDA-Public Use
  Company Number: CA-PFIZER INC-2010168347

PATIENT
  Sex: Female
  Weight: 136 kg

DRUGS (1)
  1. SUTENT [Suspect]
     Indication: ENDOMETRIAL CANCER
     Dosage: 50 MG, 1X/DAY FOR 4 WEEKS
     Route: 048
     Dates: start: 20100113

REACTIONS (1)
  - PROCTALGIA [None]
